FAERS Safety Report 6789493-2 (Version None)
Quarter: 2010Q2

REPORT INFORMATION
  Report Type: 
  Country: None (occurrence: None)
  Receive Date: 20100624
  Receipt Date: 20100616
  Transmission Date: 20101027
  Serious: Yes (Hospitalization, Other)
  Sender: FDA-Public Use
  Company Number: US-BIOGENIDEC-2010BI017487

PATIENT
  Age: 52 Year
  Sex: Female

DRUGS (9)
  1. TYSABRI [Suspect]
     Indication: MULTIPLE SCLEROSIS
     Route: 042
     Dates: start: 20080724, end: 20100301
  2. PREDNISONE [Concomitant]
  3. PREDNISONE [Concomitant]
  4. CYMBALTA [Concomitant]
  5. BACLOFEN [Concomitant]
  6. OXYBUTYNIN CHLORIDE [Concomitant]
  7. ASPIRIN [Concomitant]
  8. MULTI-VITAMINS [Concomitant]
  9. AMPICILLIN [Concomitant]

REACTIONS (2)
  - MENINGITIS [None]
  - MULTIPLE SCLEROSIS RELAPSE [None]
